FAERS Safety Report 10070019 (Version 1)
Quarter: 2014Q2

REPORT INFORMATION
  Report Type: Spontaneous
  Country: FR (occurrence: FR)
  Receive Date: 20140410
  Receipt Date: 20140410
  Transmission Date: 20141212
  Serious: Yes (Hospitalization, Other)
  Sender: FDA-Public Use
  Company Number: FR-TEVA-473931ISR

PATIENT
  Age: 82 Year
  Sex: Male

DRUGS (2)
  1. COTRIMOXAZOLE RATIOPHARM 800 MG/160 MG [Suspect]
     Route: 048
  2. PREVISCAN [Suspect]
     Route: 048
     Dates: end: 20140224

REACTIONS (6)
  - Rectal haemorrhage [Recovered/Resolved]
  - International normalised ratio increased [Recovered/Resolved]
  - Urinary retention [Unknown]
  - Diarrhoea [Unknown]
  - Abdominal pain [Unknown]
  - Bladder dilatation [Unknown]
